FAERS Safety Report 8233635-9 (Version None)
Quarter: 2012Q1

REPORT INFORMATION
  Report Type: 
  Country: None (occurrence: None)
  Receive Date: 20120326
  Receipt Date: 20120314
  Transmission Date: 20120608
  Serious: Yes (Hospitalization, Other)
  Sender: FDA-Public Use
  Company Number: US-ELI_LILLY_AND_COMPANY-US201108000315

PATIENT
  Sex: Female

DRUGS (9)
  1. FORTEO [Suspect]
     Dosage: 20 UG, QD
  2. FORTEO [Suspect]
     Dosage: 20 UG, QD
  3. FORTEO [Suspect]
     Indication: OSTEOPOROSIS
     Dosage: 20 UG, QD
     Route: 065
     Dates: start: 20110418
  4. FORTEO [Suspect]
     Dosage: 20 UG, QD
  5. PREDNISONE TAB [Concomitant]
  6. PERCOCET [Concomitant]
     Indication: GASTROINTESTINAL PAIN
     Dosage: UNK, PRN
  7. SPIRIVA [Concomitant]
     Dosage: UNK, QD
  8. FORTEO [Suspect]
     Dosage: 20 UG, QD
  9. ALBUTEROL [Concomitant]
     Dosage: UNK, EVERY 4 HRS

REACTIONS (5)
  - PNEUMONIA [None]
  - ATRIAL TACHYCARDIA [None]
  - MALABSORPTION [None]
  - CHRONIC OBSTRUCTIVE PULMONARY DISEASE [None]
  - DIZZINESS POSTURAL [None]
